FAERS Safety Report 4553549-5 (Version None)
Quarter: 2005Q1

REPORT INFORMATION
  Report Type: 
  Country: None (occurrence: None)
  Receive Date: 20050112
  Receipt Date: 20041230
  Transmission Date: 20050727
  Serious: Yes (Other)
  Sender: FDA-Public Use
  Company Number: 430020M04DEU

PATIENT
  Sex: Female

DRUGS (1)
  1. MITOXANTRONE [Suspect]

REACTIONS (2)
  - BONE MARROW TRANSPLANT [None]
  - LEUKAEMIA [None]
